FAERS Safety Report 16570602 (Version 4)
Quarter: 2019Q3

REPORT INFORMATION
  Report Type: Report from Study
  Country: IN (occurrence: IN)
  Receive Date: 20190715
  Receipt Date: 20190805
  Transmission Date: 20191004
  Serious: Yes (Life-Threatening, Hospitalization, Other)
  Sender: FDA-Public Use
  Company Number: IN-CIPLA LTD.-2019IN05001

PATIENT

DRUGS (8)
  1. CTD T [Concomitant]
     Indication: BLOOD PRESSURE ABNORMAL
     Dosage: 1 DOSAGE FORM, QD
     Route: 048
     Dates: start: 20190426, end: 20190525
  2. PANTOCID DSR [Concomitant]
     Indication: HYPERCHLORHYDRIA
     Dosage: 1 DOSAGE FORM, QD
     Route: 048
     Dates: start: 20190525, end: 20190606
  3. RITONAVIR. [Suspect]
     Active Substance: RITONAVIR
     Indication: HIV INFECTION
     Dosage: 100 MILLIGRAM, QD
     Route: 048
     Dates: start: 20190422
  4. STAMLO [Concomitant]
     Active Substance: AMLODIPINE BESYLATE
     Indication: BLOOD PRESSURE ABNORMAL
     Dosage: 5 MILLIGRAM, QD
     Route: 048
     Dates: start: 20190426, end: 20190525
  5. ZERODOL SP [Concomitant]
     Indication: ANTIINFLAMMATORY THERAPY
     Dosage: 100/15 MG, BID
     Route: 048
     Dates: start: 20190422
  6. DARUNAVIR [Suspect]
     Active Substance: DARUNAVIR
     Indication: HIV INFECTION
     Dosage: 800 MILLIGRAM, QD
     Route: 048
     Dates: start: 20190422
  7. TAFERO EM [Concomitant]
     Indication: HIV INFECTION
     Dosage: 1 DOSAGE FORM, QD
     Route: 048
     Dates: start: 20190422
  8. METOSARTAN [Concomitant]
     Indication: BLOOD PRESSURE ABNORMAL
     Dosage: 1 DOSAGE FORM, QD
     Route: 048
     Dates: start: 20190426, end: 20190525

REACTIONS (1)
  - Cerebral infarction [Recovered/Resolved]

NARRATIVE: CASE EVENT DATE: 20190625
